FAERS Safety Report 14315123 (Version 1)
Quarter: 2017Q4

REPORT INFORMATION
  Report Type: Spontaneous
  Country: FR (occurrence: FR)
  Receive Date: 20171221
  Receipt Date: 20171221
  Transmission Date: 20180321
  Serious: Yes (Death, Hospitalization)
  Sender: FDA-Public Use
  Company Number: FR-INDIVIOR LIMITED-INDV-107092-2017

PATIENT
  Age: 40 Year
  Sex: Male

DRUGS (1)
  1. BUPRENORPHINE. [Suspect]
     Active Substance: BUPRENORPHINE
     Indication: DEPENDENCE
     Dosage: 12 MG,UNK,UNK
     Route: 042

REACTIONS (3)
  - Endocarditis [Fatal]
  - Intentional product use issue [Unknown]
  - Drug dependence [Fatal]

NARRATIVE: CASE EVENT DATE: 20151104
